FAERS Safety Report 7590396-4 (Version None)
Quarter: 2011Q3

REPORT INFORMATION
  Report Type: 
  Country: None (occurrence: None)
  Receive Date: 20110705
  Receipt Date: 20110624
  Transmission Date: 20111222
  Serious: Yes (Hospitalization)
  Sender: FDA-Public Use
  Company Number: PHHY2011TW56904

PATIENT
  Age: 52 Year
  Sex: Female
  Weight: 47.5 kg

DRUGS (4)
  1. FLUOXETINE HCL [Suspect]
  2. DULOXETINE HYDROCHLORIDE [Suspect]
  3. SERTRALINE HYDROCHLORIDE [Suspect]
  4. ESCITALOPRAM [Suspect]

REACTIONS (11)
  - AKATHISIA [None]
  - MULTIPLE SYSTEM ATROPHY [None]
  - EXTRAPYRAMIDAL DISORDER [None]
  - URINARY INCONTINENCE [None]
  - GAIT DISTURBANCE [None]
  - MUSCLE RIGIDITY [None]
  - TREMOR [None]
  - ORTHOSTATIC HYPOTENSION [None]
  - BALANCE DISORDER [None]
  - PARKINSONISM [None]
  - PSYCHOMOTOR RETARDATION [None]
